FAERS Safety Report 9057613 (Version 3)
Quarter: 2016Q3

REPORT INFORMATION
  Report Type: Spontaneous
  Country: IE (occurrence: IE)
  Receive Date: 20130204
  Receipt Date: 20160902
  Transmission Date: 20161109
  Serious: Yes (Hospitalization)
  Sender: FDA-Public Use
  Company Number: IE-PFIZER INC-2013043743

PATIENT
  Sex: Male

DRUGS (3)
  1. SUTENT [Suspect]
     Active Substance: SUNITINIB MALATE
     Indication: METASTATIC RENAL CELL CARCINOMA
     Dosage: 50 MG, 1X/DAY
     Dates: start: 20120107
  2. SUTENT [Suspect]
     Active Substance: SUNITINIB MALATE
     Dosage: 50, CYCLIC (4/2 AS PRODUCT SCHEDULE )
     Dates: start: 20130107
  3. SUTENT [Suspect]
     Active Substance: SUNITINIB MALATE
     Dosage: 37.5, CYCLIC (4/2 AS PRODUCT SCHEDULE )
     Dates: end: 20130424

REACTIONS (10)
  - Decreased appetite [Unknown]
  - Vomiting [Unknown]
  - Pallor [Unknown]
  - Retching [Unknown]
  - Palmar-plantar erythrodysaesthesia syndrome [Unknown]
  - Lethargy [Unknown]
  - Oedema peripheral [Unknown]
  - Fatigue [Unknown]
  - Stomatitis [Unknown]
  - Decubitus ulcer [Recovered/Resolved]
